FAERS Safety Report 21491779 (Version 1)
Quarter: 2022Q4

REPORT INFORMATION
  Report Type: Spontaneous
  Country: US (occurrence: US)
  Receive Date: 20221021
  Receipt Date: 20221021
  Transmission Date: 20230113
  Serious: Yes (Other)
  Sender: FDA-Public Use
  Company Number: US-MYLANLABS-2022M1115914

PATIENT
  Age: 37 Year
  Sex: Male

DRUGS (1)
  1. LYRICA [Suspect]
     Active Substance: PREGABALIN
     Indication: Product used for unknown indication
     Dosage: UNK
     Route: 065
     Dates: start: 201905

REACTIONS (8)
  - Tunnel vision [Unknown]
  - Affect lability [Unknown]
  - Coordination abnormal [Unknown]
  - Memory impairment [Unknown]
  - Cognitive disorder [Unknown]
  - Disturbance in attention [Unknown]
  - Apathy [Unknown]
  - Balance disorder [Unknown]
